FAERS Safety Report 11995098 (Version 1)
Quarter: 2016Q1

REPORT INFORMATION
  Report Type: Spontaneous
  Country: US (occurrence: US)
  Receive Date: 20160203
  Receipt Date: 20160203
  Transmission Date: 20160526
  Serious: Yes (Other)
  Sender: FDA-Public Use
  Company Number: US-UCBSA-2015014171

PATIENT
  Sex: Male
  Weight: 70.3 kg

DRUGS (4)
  1. KEPPRA XR [Suspect]
     Active Substance: LEVETIRACETAM
     Indication: SEIZURE
     Dosage: 750MG/3 A DAY
  2. KEPPRA XR [Suspect]
     Active Substance: LEVETIRACETAM
     Dosage: 3000 MG, ONCE DAILY (QD)
     Route: 048
  3. DILANTIN [Concomitant]
     Active Substance: PHENYTOIN
     Indication: SEIZURE
     Dosage: 500 MG, ONCE DAILY (QD)
     Route: 048
  4. DILANTIN [Concomitant]
     Active Substance: PHENYTOIN
     Dosage: UNK
     Route: 042
     Dates: start: 20150428, end: 20150428

REACTIONS (3)
  - Generalised tonic-clonic seizure [Unknown]
  - Seizure [Unknown]
  - Amnesia [Not Recovered/Not Resolved]
